FAERS Safety Report 15104454 (Version 3)
Quarter: 2019Q2

REPORT INFORMATION
  Report Type: Report from Study
  Country: US (occurrence: US)
  Receive Date: 20180703
  Receipt Date: 20190408
  Transmission Date: 20190711
  Serious: Yes (Death)
  Sender: FDA-Public Use
  Company Number: US-PFIZER INC-2018186619

PATIENT
  Age: 46 Year
  Sex: Male
  Weight: 74.38 kg

DRUGS (5)
  1. PF-04383119 [Suspect]
     Active Substance: TANEZUMAB
     Indication: OSTEOARTHRITIS
     Dosage: 2.5 MG, EVERY 8 WEEKS
     Route: 058
     Dates: start: 20160418, end: 20160418
  2. NAPROXEN. [Concomitant]
     Active Substance: NAPROXEN
     Indication: OSTEOARTHRITIS
     Dosage: 500 MG, 2X/DAY
     Route: 048
     Dates: start: 2005, end: 20160401
  3. MORPHINE SULFATE. [Suspect]
     Active Substance: MORPHINE SULFATE
     Dosage: UNK
  4. CODEINE [Suspect]
     Active Substance: CODEINE
     Dosage: UNK
  5. PF-04383119 [Suspect]
     Active Substance: TANEZUMAB
     Dosage: 2.5 MG, EVERY 8 WEEKS
     Route: 058
     Dates: start: 20160617, end: 20160617

REACTIONS (1)
  - Toxicity to various agents [Fatal]

NARRATIVE: CASE EVENT DATE: 20160908
